FAERS Safety Report 15507987 (Version 1)
Quarter: 2018Q4

REPORT INFORMATION
  Report Type: Other
  Country: None (occurrence: GB)
  Receive Date: 20181016
  Receipt Date: 20181016
  Transmission Date: 20190205
  Serious: Yes (Death, Other)
  Sender: FDA-Public Use
  Company Number: GB-LABORATOIRE HRA PHARMA-2056211

PATIENT
  Age: 58 Year
  Sex: Female

DRUGS (3)
  1. METYRAPONE [Suspect]
     Active Substance: METYRAPONE
  2. LYSODREN [Suspect]
     Active Substance: MITOTANE
     Indication: ADJUVANT THERAPY
  3. HYDROCORTISONE. [Concomitant]
     Active Substance: HYDROCORTISONE

REACTIONS (7)
  - Malignant neoplasm progression [None]
  - Off label use [None]
  - Hepatic failure [None]
  - Vomiting [None]
  - Nausea [None]
  - Hepatocellular injury [None]
  - Fatigue [None]
